FAERS Safety Report 23219204 (Version 1)
Quarter: 2023Q4

REPORT INFORMATION
  Report Type: Report from Study
  Country: US (occurrence: US)
  Receive Date: 20231122
  Receipt Date: 20231122
  Transmission Date: 20240110
  Serious: Yes (Other)
  Sender: FDA-Public Use
  Company Number: US-ABBVIE-5439041

PATIENT
  Sex: Male
  Weight: 79 kg

DRUGS (7)
  1. HUMIRA [Suspect]
     Active Substance: ADALIMUMAB
     Indication: Rheumatoid arthritis
     Dosage: 40 MG, FREQUENCY OF FIRST AND FIFTEENTH OF EVERY MONTH.
     Route: 058
  2. SULFASALAZINE [Concomitant]
     Active Substance: SULFASALAZINE
     Indication: Rheumatoid arthritis
  3. PREDNISONE [Concomitant]
     Active Substance: PREDNISONE
     Indication: Rheumatoid arthritis
  4. LEVOTHYROXINE [Concomitant]
     Active Substance: LEVOTHYROXINE
     Indication: Hypothyroidism
  5. METOPROLOL TARTRATE [Concomitant]
     Active Substance: METOPROLOL TARTRATE
     Indication: Hypertension
  6. WARFARIN [Concomitant]
     Active Substance: WARFARIN
     Indication: Atrial fibrillation
  7. FLECAINIDE [Concomitant]
     Active Substance: FLECAINIDE
     Indication: Rheumatoid arthritis

REACTIONS (4)
  - Injury [Not Recovered/Not Resolved]
  - Rhinitis [Not Recovered/Not Resolved]
  - Rheumatoid arthritis [Not Recovered/Not Resolved]
  - Pain in extremity [Not Recovered/Not Resolved]
